FAERS Safety Report 4429512-1 (Version None)
Quarter: 2004Q3

REPORT INFORMATION
  Report Type: 
  Country: None (occurrence: None)
  Receive Date: 20040819
  Receipt Date: 20040809
  Transmission Date: 20050211
  Serious: Yes (Other)
  Sender: FDA-Public Use
  Company Number: FR-ROCHE-377073

PATIENT

DRUGS (3)
  1. NICARDIPINE HCL [Suspect]
     Indication: PREGNANCY INDUCED HYPERTENSION
     Dates: start: 19980912, end: 19980920
  2. TRANDATE [Suspect]
     Indication: PREGNANCY INDUCED HYPERTENSION
     Dates: start: 19980722, end: 19980912
  3. BISOPROLOL FUMARATE [Suspect]
     Indication: PREGNANCY INDUCED HYPERTENSION
     Dates: start: 19980721, end: 19980722

REACTIONS (2)
  - DRUG EXPOSURE DURING PREGNANCY [None]
  - NEONATAL RESPIRATORY DISTRESS SYNDROME [None]
